FAERS Safety Report 5979380-1 (Version None)
Quarter: 2008Q4

REPORT INFORMATION
  Report Type: 
  Country: None (occurrence: None)
  Receive Date: 20081204
  Receipt Date: 20081202
  Transmission Date: 20090506
  Serious: Yes (Death)
  Sender: FDA-Public Use
  Company Number: IN-SANOFI-SYNTHELABO-D01200808848

PATIENT
  Sex: Male
  Weight: 50 kg

DRUGS (5)
  1. CLOPIDOGREL [Suspect]
     Indication: ACUTE CORONARY SYNDROME
     Dosage: 300 MG (+PLACEBO) D1 FOLLOWED BY 75 MG (+PLACEBO) D2 TO D7; 75 MG FROM D8 TO 30
     Route: 048
  2. ENOXAPARIN SODIUM [Concomitant]
  3. STREPTOKINASE [Concomitant]
  4. CLOPIDOGREL [Suspect]
     Indication: ACUTE CORONARY SYNDROME
     Dosage: 600 MG LD D1 FOLLOWED BY 150 MG FROM D2 TO D7; 75 MG FROM D8 TO 30
     Route: 048
     Dates: start: 20080828
  5. ASA LOW DOSE [Concomitant]
     Indication: ACUTE CORONARY SYNDROME
     Dosage: AT LEAST 300 MG D1; 75-100 MG FROM D2 TO D30
     Route: 048
     Dates: start: 20080828

REACTIONS (1)
  - CARDIAC TAMPONADE [None]
